FAERS Safety Report 4618976-6 (Version None)
Quarter: 2005Q1

REPORT INFORMATION
  Report Type: 
  Country: None (occurrence: None)
  Receive Date: 20050325
  Receipt Date: 20050315
  Transmission Date: 20050727
  Serious: Yes (Other)
  Sender: FDA-Public Use
  Company Number: US-ABBOTT-05P-163-0294216-00

PATIENT
  Age: 68 Year
  Sex: Male

DRUGS (7)
  1. NIMBEX [Suspect]
     Indication: HYPOTONIA
     Route: 042
     Dates: start: 20050314, end: 20050314
  2. NIMBEX [Suspect]
     Route: 042
     Dates: start: 20050314, end: 20050314
  3. FENTANYL [Concomitant]
     Indication: ANAESTHESIA
     Route: 042
     Dates: start: 20050314, end: 20050314
  4. TOPOROL XL [Concomitant]
     Indication: HYPERTENSION
     Route: 048
  5. DEXAMETHASONE [Concomitant]
     Indication: PREMEDICATION
     Route: 042
     Dates: start: 20050314, end: 20050314
  6. ONDANSETRON HYDROCHLORIDE [Concomitant]
     Indication: PREMEDICATION
     Route: 042
     Dates: start: 20050314, end: 20050314
  7. METOCLOPRAMIDE [Concomitant]
     Indication: PREMEDICATION
     Route: 042
     Dates: start: 20050314, end: 20050314

REACTIONS (4)
  - ANAESTHETIC COMPLICATION NEUROLOGICAL [None]
  - HYPERCAPNIA [None]
  - SUBCUTANEOUS EMPHYSEMA [None]
  - TESTICULAR SWELLING [None]
